FAERS Safety Report 13402614 (Version 1)
Quarter: 2017Q2

REPORT INFORMATION
  Report Type: Report from Study
  Country: US (occurrence: US)
  Receive Date: 20170404
  Receipt Date: 20170404
  Transmission Date: 20170830
  Serious: Yes (Death, Hospitalization)
  Sender: FDA-Public Use
  Company Number: US-ACTELION-A-US2017-151777

PATIENT
  Age: 33 Year
  Sex: Female

DRUGS (3)
  1. OPSUMIT [Suspect]
     Active Substance: MACITENTAN
     Indication: PULMONARY ARTERIAL HYPERTENSION
     Dosage: 10 MG, QD
     Route: 048
  2. ADCIRCA [Concomitant]
     Active Substance: TADALAFIL
  3. REMODULIN [Suspect]
     Active Substance: TREPROSTINIL
     Indication: PULMONARY ARTERIAL HYPERTENSION
     Dosage: 14 NG/KG/MIN
     Route: 058
     Dates: start: 20161214

REACTIONS (4)
  - Pyrexia [Unknown]
  - Epistaxis [Unknown]
  - Death [Fatal]
  - Pneumonia aspiration [Unknown]

NARRATIVE: CASE EVENT DATE: 20170309
